FAERS Safety Report 17117368 (Version 1)
Quarter: 2019Q4

REPORT INFORMATION
  Report Type: Spontaneous
  Country: PT (occurrence: PT)
  Receive Date: 20191205
  Receipt Date: 20191205
  Transmission Date: 20200122
  Serious: Yes (Other)
  Sender: FDA-Public Use
  Company Number: PT-MYLANLABS-2019M1119418

PATIENT
  Age: 68 Year
  Sex: Female

DRUGS (1)
  1. LEVOFLOXACIN. [Suspect]
     Active Substance: LEVOFLOXACIN
     Indication: PNEUMONIA
     Dosage: 750MG
     Route: 042
     Dates: start: 20190712, end: 20190712

REACTIONS (2)
  - Administration site erythema [Recovering/Resolving]
  - Administration site oedema [Recovering/Resolving]

NARRATIVE: CASE EVENT DATE: 20190712
